FAERS Safety Report 18850685 (Version 1)
Quarter: 2021Q1

REPORT INFORMATION
  Report Type: Spontaneous
  Country: BR (occurrence: BR)
  Receive Date: 20210204
  Receipt Date: 20210204
  Transmission Date: 20210420
  Serious: Yes (Other)
  Sender: FDA-Public Use
  Company Number: NVSC2021BR022553

PATIENT
  Age: 69 Year
  Sex: Male

DRUGS (1)
  1. ULTIBRO [Suspect]
     Active Substance: GLYCOPYRRONIUM\INDACATEROL
     Indication: PRODUCT USED FOR UNKNOWN INDICATION
     Dosage: UNK
     Route: 065

REACTIONS (5)
  - Cystitis [Unknown]
  - Pollakiuria [Unknown]
  - Abdominal pain lower [Unknown]
  - Dysuria [Unknown]
  - Urinary retention [Unknown]
